FAERS Safety Report 8570034-4 (Version None)
Quarter: 2012Q3

REPORT INFORMATION
  Report Type: 
  Country: None (occurrence: None)
  Receive Date: 20120803
  Receipt Date: 20120611
  Transmission Date: 20120928
  Serious: No
  Sender: FDA-Public Use
  Company Number: US-ABBOTT-12P-163-0944886-00

PATIENT
  Sex: Male
  Weight: 68.1 kg

DRUGS (4)
  1. NIASPAN [Suspect]
     Indication: BLOOD CHOLESTEROL INCREASED
     Dosage: AT BEDTIME
  2. NIASPAN [Suspect]
     Indication: LOW DENSITY LIPOPROTEIN DECREASED
     Dates: start: 20120604
  3. ASPIRIN [Concomitant]
     Indication: PRODUCT USED FOR UNKNOWN INDICATION
  4. BENICAR [Concomitant]
     Indication: PRODUCT USED FOR UNKNOWN INDICATION

REACTIONS (6)
  - BLOOD CHOLESTEROL INCREASED [None]
  - ASPARTATE AMINOTRANSFERASE INCREASED [None]
  - FEELING HOT [None]
  - PRURITUS [None]
  - FLUSHING [None]
  - ALANINE AMINOTRANSFERASE INCREASED [None]
